FAERS Safety Report 18109459 (Version 1)
Quarter: 2020Q3

REPORT INFORMATION
  Report Type: Spontaneous
  Country: US (occurrence: US)
  Receive Date: 20200804
  Receipt Date: 20200804
  Transmission Date: 20201103
  Serious: No
  Sender: FDA-Public Use
  Company Number: None

PATIENT
  Age: 50 Year
  Sex: Female

DRUGS (3)
  1. ELETRIPTAN 40MG [Concomitant]
     Active Substance: ELETRIPTAN
  2. EMGALITY [Suspect]
     Active Substance: GALCANEZUMAB-GNLM
     Indication: MIGRAINE
     Dosage: ?          OTHER FREQUENCY:Q MONTH;?
     Route: 058
     Dates: start: 20200224
  3. BUTORPHANOL NASAL SPRAY [Concomitant]

REACTIONS (3)
  - Joint stiffness [None]
  - Weight increased [None]
  - Musculoskeletal stiffness [None]

NARRATIVE: CASE EVENT DATE: 20200804
